FAERS Safety Report 20673432 (Version 1)
Quarter: 2022Q2

REPORT INFORMATION
  Report Type: Spontaneous
  Country: US (occurrence: US)
  Receive Date: 20220405
  Receipt Date: 20220405
  Transmission Date: 20220721
  Serious: No
  Sender: FDA-Public Use
  Company Number: US-009507513-2203USA006077

PATIENT
  Sex: Female

DRUGS (5)
  1. BELSOMRA [Suspect]
     Active Substance: SUVOREXANT
     Indication: Sleep disorder
     Dosage: UNK
     Route: 048
     Dates: start: 20220101
  2. BELSOMRA [Suspect]
     Active Substance: SUVOREXANT
     Dosage: UNK
     Route: 048
     Dates: start: 202202
  3. BELSOMRA [Suspect]
     Active Substance: SUVOREXANT
     Dosage: 10 MILLIGRAM / 1 TABLET BY MOUTH ONCE DAILY AT BEDTIME
     Route: 048
     Dates: start: 20220316
  4. GABAPENTIN [Concomitant]
     Active Substance: GABAPENTIN
  5. METFORMIN [Concomitant]
     Active Substance: METFORMIN HYDROCHLORIDE

REACTIONS (7)
  - Fall [Unknown]
  - Drug ineffective [Unknown]
  - Product colour issue [Unknown]
  - Product colour issue [Unknown]
  - Suspected counterfeit product [Unknown]
  - Counterfeit product administered [Unknown]
  - Circumstance or information capable of leading to medication error [Unknown]

NARRATIVE: CASE EVENT DATE: 20220101
